FAERS Safety Report 7782422-4 (Version None)
Quarter: 2011Q3

REPORT INFORMATION
  Report Type: 
  Country: None (occurrence: None)
  Receive Date: 20110928
  Receipt Date: 20110916
  Transmission Date: 20111222
  Serious: Yes (Hospitalization)
  Sender: FDA-Public Use
  Company Number: TH-AMGEN-THASP2011045722

PATIENT
  Age: 42 Year
  Sex: Female

DRUGS (1)
  1. ENBREL [Suspect]
     Indication: PSORIASIS
     Dosage: DOSE UNKNOWN, 2X/WEEK
     Route: 058
     Dates: start: 20100721, end: 20100825

REACTIONS (4)
  - CONVULSION [None]
  - HEPATIC FUNCTION ABNORMAL [None]
  - FATIGUE [None]
  - PLATELET COUNT DECREASED [None]
